FAERS Safety Report 5122846-7 (Version None)
Quarter: 2006Q4

REPORT INFORMATION
  Report Type: 
  Country: None (occurrence: None)
  Receive Date: 20061004
  Receipt Date: 20061004
  Transmission Date: 20070319
  Serious: Yes (Other)
  Sender: FDA-Public Use
  Company Number: None

PATIENT
  Age: 70 Year
  Sex: Male
  Weight: 69.4003 kg

DRUGS (1)
  1. ERBITUX [Suspect]
     Indication: OROPHARYNGEAL CANCER STAGE UNSPECIFIED
     Dosage: JUST UNDER 20 MG FIRST DOSE IV
     Route: 042
     Dates: start: 20060911

REACTIONS (7)
  - BLOOD PRESSURE DECREASED [None]
  - INFUSION RELATED REACTION [None]
  - OXYGEN SATURATION DECREASED [None]
  - PARAESTHESIA [None]
  - PRURITUS [None]
  - SWOLLEN TONGUE [None]
  - URTICARIA [None]
